FAERS Safety Report 8829104 (Version 1)
Quarter: 2012Q4

REPORT INFORMATION
  Report Type: 
  Country: CA (occurrence: CA)
  Receive Date: 20121008
  Receipt Date: 20121008
  Transmission Date: 20130627
  Serious: Yes (Other)
  Sender: FDA-Public Use
  Company Number: CA-ROCHE-1142463

PATIENT
  Sex: Female

DRUGS (4)
  1. HERCEPTIN [Suspect]
     Indication: PRODUCT USED FOR UNKNOWN INDICATION
     Route: 065
  2. VINORELBINE [Suspect]
     Indication: PRODUCT USED FOR UNKNOWN INDICATION
  3. XELODA [Concomitant]
  4. TAXOTERE [Concomitant]

REACTIONS (2)
  - Cardiac disorder [Unknown]
  - Disease progression [Unknown]
